FAERS Safety Report 13618405 (Version 2)
Quarter: 2017Q2

REPORT INFORMATION
  Report Type: Report from Study
  Country: MX (occurrence: MX)
  Receive Date: 20170606
  Receipt Date: 20170616
  Transmission Date: 20170830
  Serious: Yes (Other)
  Sender: FDA-Public Use
  Company Number: MX-UCBSA-2017021751

PATIENT
  Age: 13 Year
  Sex: Female
  Weight: 53 kg

DRUGS (7)
  1. SALBUTAMOL [Concomitant]
     Active Substance: ALBUTEROL
     Indication: ASTHMA
     Dosage: 200 ?G, AS NEEDED (PRN)
     Route: 048
     Dates: start: 20140217
  2. METHYLPHENIDATE. [Concomitant]
     Active Substance: METHYLPHENIDATE
     Indication: ATTENTION DEFICIT/HYPERACTIVITY DISORDER
     Dosage: 5 MG, ONCE DAILY (QD)
     Route: 048
     Dates: start: 20160120
  3. BRIVARACETAM [Suspect]
     Active Substance: BRIVARACETAM
     Indication: EPILEPSY
     Dosage: 75 MG, 2X/DAY (BID)
     Route: 048
     Dates: start: 20140421
  4. BECLOMETASONE [Concomitant]
     Active Substance: BECLOMETHASONE DIPROPIONATE
     Indication: ASTHMA
     Dosage: 100 ?G, AS NEEDED (PRN)
     Route: 048
     Dates: start: 20140217
  5. HYOSCINE BUTYLBROMIDE [Concomitant]
     Active Substance: BUTYLSCOPOLAMINE
     Indication: DYSMENORRHOEA
     Dosage: 10 MG, AS NEEDED (PRN)
     Route: 048
     Dates: start: 20140729
  6. METAMIZOLE [Concomitant]
     Active Substance: METAMIZOLE
     Indication: DYSMENORRHOEA
     Dosage: 500 MG, AS NEEDED (PRN)
     Route: 048
     Dates: start: 20140729
  7. PARACETAMOL [Concomitant]
     Active Substance: ACETAMINOPHEN
     Indication: HEADACHE
     Dosage: 500 MG, AS NEEDED (PRN)
     Route: 048
     Dates: start: 20140217

REACTIONS (2)
  - Depression [Not Recovered/Not Resolved]
  - Intentional self-injury [Unknown]

NARRATIVE: CASE EVENT DATE: 20170221
